FAERS Safety Report 4667967-8 (Version None)
Quarter: 2005Q2

REPORT INFORMATION
  Report Type: 
  Country: None (occurrence: None)
  Receive Date: 20050520
  Receipt Date: 20050317
  Transmission Date: 20051028
  Serious: Yes (Other)
  Sender: FDA-Public Use
  Company Number: 2005UW04206

PATIENT
  Age: 19786 Day
  Sex: Female
  Weight: 109.5 kg

DRUGS (8)
  1. CRESTOR [Suspect]
     Indication: DYSLIPIDAEMIA
     Route: 048
     Dates: start: 20041213, end: 20041230
  2. TEGRETOL [Interacting]
     Indication: AGGRESSION
     Route: 048
     Dates: start: 20001001
  3. TEGRETOL [Interacting]
     Dosage: 400/600 MG BID
     Route: 048
     Dates: start: 19980312
  4. ARIPIPRAZOLE [Concomitant]
     Dates: start: 20030708
  5. OLANZAPINE [Concomitant]
     Dates: start: 19991204
  6. CLONAZEPAM [Concomitant]
     Dates: start: 19980312
  7. CALCIUM/VITAMIN D [Concomitant]
     Dates: start: 20010924
  8. PEG-ELECTROLYTE SOLUTION [Concomitant]
     Dates: start: 20040113

REACTIONS (4)
  - ANTICONVULSANT DRUG LEVEL INCREASED [None]
  - BALANCE DISORDER [None]
  - DRUG INTERACTION [None]
  - FALL [None]
